FAERS Safety Report 23712045 (Version 1)
Quarter: 2024Q2

REPORT INFORMATION
  Report Type: Spontaneous
  Country: US (occurrence: None)
  Receive Date: 20240404
  Receipt Date: 20240404
  Transmission Date: 20240716
  Serious: Yes (Other)
  Sender: FDA-Public Use
  Company Number: None

PATIENT
  Age: 75 Year
  Sex: Female
  Weight: 127.35 kg

DRUGS (1)
  1. POMALYST [Suspect]
     Active Substance: POMALIDOMIDE
     Indication: Plasma cell myeloma
     Dosage: MULTIPLE MYELOMA?
     Route: 048
     Dates: start: 20230803

REACTIONS (3)
  - Pruritus [None]
  - Skin exfoliation [None]
  - Peripheral swelling [None]

NARRATIVE: CASE EVENT DATE: 20240404
